FAERS Safety Report 18306549 (Version 1)
Quarter: 2020Q3

REPORT INFORMATION
  Report Type: Report from Study
  Country: IN (occurrence: IN)
  Receive Date: 20200924
  Receipt Date: 20200924
  Transmission Date: 20201103
  Serious: Yes (Death, Hospitalization, Other)
  Sender: FDA-Public Use
  Company Number: NVSC2020IN112633

PATIENT
  Age: 46 Year
  Sex: Female

DRUGS (1)
  1. KRYXANA [Suspect]
     Active Substance: RIBOCICLIB
     Indication: BREAST CANCER METASTATIC
     Dosage: 600 MG, QD
     Route: 048
     Dates: start: 20191019

REACTIONS (6)
  - Malignant neoplasm progression [Fatal]
  - Pancytopenia [Fatal]
  - Haemoglobin decreased [Not Recovered/Not Resolved]
  - Breast cancer metastatic [Fatal]
  - Metastases to liver [Fatal]
  - Drug intolerance [Fatal]

NARRATIVE: CASE EVENT DATE: 202001
